FAERS Safety Report 16213701 (Version 2)
Quarter: 2019Q2

REPORT INFORMATION
  Report Type: Spontaneous
  Country: US (occurrence: US)
  Receive Date: 20190418
  Receipt Date: 20190510
  Transmission Date: 20190711
  Serious: Yes (Hospitalization)
  Sender: FDA-Public Use
  Company Number: US-BIOMARINAP-US-2019-123041

PATIENT
  Age: 4 Year
  Sex: Male

DRUGS (1)
  1. BRINEURA [Suspect]
     Active Substance: CERLIPONASE ALFA
     Indication: NEURONAL CEROID LIPOFUSCINOSIS
     Dosage: UNK UNK, QOW
     Route: 020
     Dates: start: 20181017

REACTIONS (1)
  - CSF culture positive [Recovered/Resolved]

NARRATIVE: CASE EVENT DATE: 20190320
